FAERS Safety Report 7544052-9 (Version None)
Quarter: 2011Q2

REPORT INFORMATION
  Report Type: 
  Country: None (occurrence: None)
  Receive Date: 20110613
  Receipt Date: 20050928
  Transmission Date: 20111010
  Serious: Yes (Death, Hospitalization)
  Sender: FDA-Public Use
  Company Number: PHHO2005CA13504

PATIENT
  Sex: Male

DRUGS (6)
  1. ALDACTONE [Concomitant]
  2. LASIX [Concomitant]
  3. SANDOSTATIN LAR [Suspect]
     Indication: HEPATIC NEOPLASM MALIGNANT NON-RESECTABLE
     Dosage: 30 MG, EVERY 4 WEEKS
     Dates: start: 20050707, end: 20050828
  4. ATENOLOL [Concomitant]
  5. FERROUS SULFATE TAB [Concomitant]
  6. NEXIUM [Concomitant]

REACTIONS (6)
  - DEATH [None]
  - CHOKING [None]
  - PULMONARY FIBROSIS [None]
  - RETCHING [None]
  - ASCITES [None]
  - HEART RATE INCREASED [None]
